FAERS Safety Report 9318995 (Version 2)
Quarter: 2013Q2

REPORT INFORMATION
  Report Type: Spontaneous
  Country: US (occurrence: None)
  Receive Date: 20130524
  Receipt Date: 20130531
  Transmission Date: 20140414
  Serious: Yes (Other)
  Sender: FDA-Public Use
  Company Number: JPI-P-031860

PATIENT
  Age: 63 Year
  Sex: Female

DRUGS (4)
  1. XYREM (500 MILLIGRAM/MILLILITERS, SOLUTION) (SODIUM OXYBATE) [Suspect]
     Indication: CATAPLEXY
     Dosage: 4.5 GM (2.25 GM,2 IN 1 D)
     Route: 048
     Dates: start: 20130309, end: 2013
  2. MEDICATIONS FOR DIABETES [Concomitant]
  3. MEDICATION FOR HYPERTENSION [Concomitant]
  4. MEDICATION FOR CHOLESTEROL [Concomitant]

REACTIONS (8)
  - Salmonellosis [None]
  - Urinary retention [None]
  - Blood magnesium decreased [None]
  - Blood potassium decreased [None]
  - Anaemia [None]
  - Mucosal infection [None]
  - Gastrointestinal disorder [None]
  - Gastric infection [None]
